FAERS Safety Report 7282518-X (Version None)
Quarter: 2011Q1

REPORT INFORMATION
  Report Type: 
  Country: None (occurrence: None)
  Receive Date: 20110209
  Receipt Date: 20101203
  Transmission Date: 20110831
  Serious: Yes (Hospitalization, Other)
  Sender: FDA-Public Use
  Company Number: US-BAYER-201033668NA

PATIENT
  Sex: Male

DRUGS (3)
  1. NEXAVAR [Suspect]
     Indication: HEPATIC NEOPLASM MALIGNANT
     Dosage: 400 MG, BID
     Route: 048
     Dates: start: 20100802
  2. NEXAVAR [Suspect]
     Dosage: 400 MG, BID
     Route: 048
  3. NEXAVAR [Suspect]
     Dosage: 400 MG, BID

REACTIONS (5)
  - DIARRHOEA [None]
  - AMPUTATION [None]
  - HEPATIC NEOPLASM MALIGNANT [None]
  - HOSPITALISATION [None]
  - NAUSEA [None]
